FAERS Safety Report 12240368 (Version 1)
Quarter: 2016Q2

REPORT INFORMATION
  Report Type: Not Available
  Country: FR (occurrence: FR)
  Receive Date: 20160405
  Receipt Date: 20160405
  Transmission Date: 20160815
  Serious: Yes (Death)
  Sender: FDA-Public Use
  Company Number: FR-MIDATECHPHARMA-2016-FR-000010

PATIENT
  Age: 72 Year
  Sex: Male

DRUGS (12)
  1. FOLIC ACID. [Suspect]
     Active Substance: FOLIC ACID
     Dates: start: 20151224, end: 20160217
  2. AMOXICILLIN TRIHYDRATE [Suspect]
     Active Substance: AMOXICILLIN
     Route: 048
     Dates: start: 20160126, end: 20160214
  3. MIANSERINE HYDROCHLORIDE [Suspect]
     Active Substance: MIANSERIN HYDROCHLORIDE
     Route: 048
     Dates: start: 20151224, end: 20160214
  4. LORAMYC [Suspect]
     Active Substance: MICONAZOLE
     Dosage: 50MG
     Route: 048
     Dates: start: 20160127, end: 20160205
  5. PANTOPRAZOLE SODIUM SESQUIHYDRATE [Suspect]
     Active Substance: PANTOPRAZOLE SODIUM
     Route: 048
     Dates: start: 20160122, end: 20160217
  6. PREDNISOLONE. [Suspect]
     Active Substance: PREDNISOLONE
     Dates: start: 20151224, end: 20160129
  7. CLAVULANIC ACID [Suspect]
     Active Substance: CLAVULANIC ACID
     Route: 048
     Dates: start: 20160122, end: 20160214
  8. PREDNISONE. [Suspect]
     Active Substance: PREDNISONE
     Dates: start: 20160131, end: 20160217
  9. AMOXICILLIN. [Suspect]
     Active Substance: AMOXICILLIN
     Route: 048
     Dates: start: 20160122, end: 20160214
  10. AMPHOTERICIN B. [Suspect]
     Active Substance: AMPHOTERICIN B
     Route: 048
     Dates: start: 20160122, end: 20160212
  11. METOCLOPRAMIDE HYDROCHLORIDE. [Suspect]
     Active Substance: METOCLOPRAMIDE HYDROCHLORIDE
     Route: 048
     Dates: start: 20160122, end: 20160217
  12. LEVETIRACETAM. [Suspect]
     Active Substance: LEVETIRACETAM
     Route: 048
     Dates: start: 20151222, end: 20160214

REACTIONS (3)
  - Disseminated intravascular coagulation [Fatal]
  - Drug reaction with eosinophilia and systemic symptoms [Fatal]
  - Death [Fatal]

NARRATIVE: CASE EVENT DATE: 201602
